FAERS Safety Report 12420877 (Version 1)
Quarter: 2016Q2

REPORT INFORMATION
  Report Type: Spontaneous
  Country: FR (occurrence: FR)
  Receive Date: 20160531
  Receipt Date: 20160531
  Transmission Date: 20160815
  Serious: Yes (Hospitalization)
  Sender: FDA-Public Use
  Company Number: FR-BAYER-2016-105582

PATIENT
  Age: 60 Year
  Sex: Male

DRUGS (2)
  1. ULTRAVIST [Suspect]
     Active Substance: IOPROMIDE
     Dosage: 150 ML, ONCE
     Dates: start: 20160308, end: 20160308
  2. ULTRAVIST [Suspect]
     Active Substance: IOPROMIDE
     Dosage: 150 ML, ONCE
     Route: 042
     Dates: start: 20160308, end: 20160308

REACTIONS (2)
  - Angioedema [Recovered/Resolved]
  - Papule [Recovered/Resolved]

NARRATIVE: CASE EVENT DATE: 20160308
